FAERS Safety Report 9126655 (Version 1)
Quarter: 2013Q1

REPORT INFORMATION
  Report Type: Spontaneous
  Country: US (occurrence: None)
  Receive Date: 20130130
  Receipt Date: 20130130
  Transmission Date: 20140127
  Serious: Yes (Death)
  Sender: FDA-Public Use
  Company Number: B0859497A

PATIENT
  Age: 44 Year
  Sex: Female

DRUGS (7)
  1. PAROXETINE HYDROCHLORIDE (FORMULATION UNKNOWN) (GENERIC) (PAROXETINE HYDROCHLORIDE) [Suspect]
     Dosage: UNK  /  UNK  /  ORAL?UNK
     Route: 048
  2. TRAMADOL HYDROCHLORIDE [Suspect]
     Dosage: UNK  /  UNK  /  ORAL?UNK
     Route: 048
  3. LAMOTRIGINE (FORMULATION UNKNOWN) (GENERIC) (LAMOTRIGINE) [Suspect]
     Dosage: UNK  /  UNK  /  ORAL?UNK
     Route: 048
  4. CLONAZEPAM (FORMULATION UNKNOWN) (GENERIC) (CLONAZEPINE) [Suspect]
     Dosage: UNK  /  UNK  /  ORAL?UNK
     Route: 048
  5. ONDANSETRON HYDROCHLORIDE [Suspect]
     Dosage: UNK  /  UNK  /  ORAL?UNK
     Route: 048
  6. DIFLUNISAL [Suspect]
     Dosage: UNK  /  UNK  /  ORAL?UNK
     Route: 048
  7. ETHANOL (FORMULATION UNKNOWN) (ALCOHOL) [Suspect]
     Dosage: UNK  /  UNK  /  ORAL?UNK
     Route: 048

REACTIONS (2)
  - Cardio-respiratory arrest [None]
  - Completed suicide [None]
